FAERS Safety Report 6076982-1 (Version None)
Quarter: 2009Q2

REPORT INFORMATION
  Report Type: 
  Country: None (occurrence: None)
  Receive Date: 20090211
  Receipt Date: 20090211
  Transmission Date: 20091009
  Serious: Yes (Hospitalization)
  Sender: FDA-Public Use
  Company Number: None

PATIENT
  Sex: Female
  Weight: 53 kg

DRUGS (2)
  1. CARBOPLATIN [Suspect]
     Dosage: 558 MG
     Dates: end: 20090204
  2. TAXOL [Suspect]
     Dosage: 279 MG
     Dates: end: 20090204

REACTIONS (5)
  - CATHETER SEPSIS [None]
  - NECK PAIN [None]
  - PYREXIA [None]
  - RESPIRATORY RATE INCREASED [None]
  - TACHYCARDIA [None]
